FAERS Safety Report 23926853 (Version 1)
Quarter: 2024Q2

REPORT INFORMATION
  Report Type: Spontaneous
  Country: US (occurrence: US)
  Receive Date: 20240531
  Receipt Date: 20240531
  Transmission Date: 20240716
  Serious: Yes (Other)
  Sender: FDA-Public Use
  Company Number: US-TEVA-VS-3202164

PATIENT
  Age: 73 Year
  Sex: Female

DRUGS (3)
  1. QVAR REDIHALER [Suspect]
     Active Substance: BECLOMETHASONE DIPROPIONATE
     Indication: Asthma
     Route: 065
  2. QVAR REDIHALER [Suspect]
     Active Substance: BECLOMETHASONE DIPROPIONATE
  3. QVAR REDIHALER [Suspect]
     Active Substance: BECLOMETHASONE DIPROPIONATE

REACTIONS (8)
  - Hip surgery [Unknown]
  - Stomatitis [Not Recovered/Not Resolved]
  - Complication associated with device [Unknown]
  - Product quality issue [Unknown]
  - Depressed mood [Unknown]
  - Discomfort [Unknown]
  - Feeling abnormal [Unknown]
  - Candida infection [Not Recovered/Not Resolved]

NARRATIVE: CASE EVENT DATE: 20240501
